FAERS Safety Report 4515214-X (Version None)
Quarter: 2004Q4

REPORT INFORMATION
  Report Type: 
  Country: None (occurrence: None)
  Receive Date: 20041201
  Receipt Date: 20041119
  Transmission Date: 20050328
  Serious: Yes (Hospitalization)
  Sender: FDA-Public Use
  Company Number: FR-GLAXOSMITHKLINE-B0357684A

PATIENT
  Age: 20 Year
  Sex: Male

DRUGS (5)
  1. LAMICTAL [Suspect]
     Dosage: 25MG UNKNOWN
     Route: 048
     Dates: start: 20041013, end: 20041017
  2. ALEPSAL [Suspect]
     Dosage: 150MG PER DAY
     Route: 048
     Dates: start: 20041013, end: 20041017
  3. RIVOTRIL [Suspect]
     Indication: MYOCLONUS
     Route: 042
     Dates: start: 20041017, end: 20041018
  4. PHENOBARBITAL TAB [Suspect]
     Dosage: 150MG PER DAY
     Route: 048
     Dates: start: 20041008, end: 20041017
  5. VALIUM [Concomitant]
     Route: 065
     Dates: start: 20041008

REACTIONS (7)
  - MYOCLONIC EPILEPSY [None]
  - NEUTROPENIA [None]
  - NEUTROPHIL COUNT DECREASED [None]
  - PYREXIA [None]
  - RASH [None]
  - THROMBOCYTOPENIA [None]
  - WHITE BLOOD CELL COUNT DECREASED [None]
